FAERS Safety Report 12587278 (Version 1)
Quarter: 2016Q3

REPORT INFORMATION
  Report Type: Spontaneous
  Country: AU (occurrence: AU)
  Receive Date: 20160725
  Receipt Date: 20160725
  Transmission Date: 20161109
  Serious: Yes (Hospitalization)
  Sender: FDA-Public Use
  Company Number: AU-TOLMAR, INC.-2016AU007057

PATIENT
  Sex: Male

DRUGS (8)
  1. LORSTAT [Concomitant]
     Dosage: 40 MG, DAILY
  2. UREMIDE [Concomitant]
     Active Substance: FUROSEMIDE
     Dosage: 120 MG, DAILY
  3. VITAMIN D                          /00107901/ [Concomitant]
     Active Substance: ERGOCALCIFEROL
     Dosage: 1000 IU, DAILY
  4. DOSULEPIN HYDROCHLORIDE [Concomitant]
     Active Substance: DOTHIEPIN HYDROCHLORIDE
     Dosage: 25 MG, DAILY
  5. BISPRO [Concomitant]
     Dosage: 5 MG, DAILY
  6. ELIGARD [Suspect]
     Active Substance: LEUPROLIDE ACETATE
     Indication: PROSTATE CANCER
     Dosage: 45 MG, EVERY 6 MONTHS
     Route: 065
     Dates: start: 201407
  7. ASPIRIN                            /00002701/ [Concomitant]
     Active Substance: ASPIRIN
     Dosage: 100 MG, DAILY
  8. TRYZAN [Concomitant]
     Active Substance: RAMIPRIL
     Dosage: 2.5 MG, DAILY

REACTIONS (3)
  - Weight decreased [Unknown]
  - Myocardial infarction [Unknown]
  - Musculoskeletal discomfort [Unknown]
